FAERS Safety Report 21813384 (Version 1)
Quarter: 2023Q1

REPORT INFORMATION
  Report Type: Report from Study
  Country: FR (occurrence: FR)
  Receive Date: 20230103
  Receipt Date: 20230103
  Transmission Date: 20230417
  Serious: Yes (Other)
  Sender: FDA-Public Use
  Company Number: FR-ABBVIE-4256018

PATIENT
  Age: 77 Year
  Sex: Female

DRUGS (2)
  1. CARBIDOPA\LEVODOPA [Suspect]
     Active Substance: CARBIDOPA\LEVODOPA
     Indication: Parkinson^s disease
     Route: 050
     Dates: start: 20160217
  2. CARBIDOPA\LEVODOPA [Suspect]
     Active Substance: CARBIDOPA\LEVODOPA

REACTIONS (10)
  - Loss of personal independence in daily activities [Unknown]
  - Hypophagia [Unknown]
  - Dyskinesia [Unknown]
  - Fall [Unknown]
  - Muscular weakness [Unknown]
  - Balance disorder [Unknown]
  - Motor dysfunction [Unknown]
  - Appetite disorder [Unknown]
  - Asthenia [Unknown]
  - Dystonia [Unknown]
